FAERS Safety Report 18131981 (Version 1)
Quarter: 2020Q3

REPORT INFORMATION
  Report Type: Spontaneous
  Country: GB (occurrence: GB)
  Receive Date: 20200811
  Receipt Date: 20200811
  Transmission Date: 20201103
  Serious: Yes (Hospitalization, Other)
  Sender: FDA-Public Use
  Company Number: GB-BIOGEN-2012BI013263

PATIENT
  Sex: Female
  Weight: 49 kg

DRUGS (3)
  1. TYSABRI [Suspect]
     Active Substance: NATALIZUMAB
     Route: 065
  2. TYSABRI [Suspect]
     Active Substance: NATALIZUMAB
     Indication: RELAPSING-REMITTING MULTIPLE SCLEROSIS
     Route: 065
     Dates: start: 201007
  3. TYSABRI [Suspect]
     Active Substance: NATALIZUMAB
     Route: 065
     Dates: start: 201010

REACTIONS (9)
  - Herpes zoster meningitis [Recovered/Resolved with Sequelae]
  - Vestibular neuronitis [Recovered/Resolved]
  - Ataxia [Unknown]
  - Paraparesis [Unknown]
  - Retinal detachment [Recovered/Resolved]
  - Prescribed underdose [Not Recovered/Not Resolved]
  - Ophthalmic herpes zoster [Not Recovered/Not Resolved]
  - Multiple sclerosis relapse [Recovered/Resolved]
  - Necrotising retinitis [Recovered/Resolved]
